FAERS Safety Report 7001170-1 (Version None)
Quarter: 2010Q3

REPORT INFORMATION
  Report Type: 
  Country: None (occurrence: None)
  Receive Date: 20100920
  Receipt Date: 20100504
  Transmission Date: 20110219
  Serious: Yes (Hospitalization)
  Sender: FDA-Public Use
  Company Number: US-ASTRAZENECA-2007UW03850

PATIENT
  Age: 242 Month
  Sex: Male
  Weight: 107.5 kg

DRUGS (27)
  1. SEROQUEL [Suspect]
     Indication: DEPRESSION
     Dosage: 150 MG IN THE MORNING AND 150 MG IN THE EVENING
     Route: 048
     Dates: start: 19991122, end: 20000701
  2. SEROQUEL [Suspect]
     Indication: ANXIETY
     Dosage: 150 MG IN THE MORNING AND 150 MG IN THE EVENING
     Route: 048
     Dates: start: 19991122, end: 20000701
  3. SEROQUEL [Suspect]
     Dosage: 25-200 MG
     Route: 048
  4. SEROQUEL [Suspect]
     Dosage: 25-200 MG
     Route: 048
  5. SEROQUEL [Suspect]
     Route: 048
     Dates: start: 19991212, end: 20000618
  6. SEROQUEL [Suspect]
     Route: 048
     Dates: start: 19991212, end: 20000618
  7. SEROQUEL [Suspect]
     Dosage: 25 MG 1 TABLET TWICE DAILY FOR THREE DAYS, THEN INCREASED TO 2 TABLETS TWICE DAILY
     Route: 048
     Dates: start: 19991101
  8. SEROQUEL [Suspect]
     Dosage: 25 MG 1 TABLET TWICE DAILY FOR THREE DAYS, THEN INCREASED TO 2 TABLETS TWICE DAILY
     Route: 048
     Dates: start: 19991101
  9. SEROQUEL [Suspect]
     Dosage: 100 MG HALF TABLET EACH MORNING AND ONE TABLET EACH BEDTIME
     Route: 048
     Dates: start: 20000101
  10. SEROQUEL [Suspect]
     Dosage: 100 MG HALF TABLET EACH MORNING AND ONE TABLET EACH BEDTIME
     Route: 048
     Dates: start: 20000101
  11. SLIM FAST [Concomitant]
     Dates: start: 20020101, end: 20030101
  12. RILICORE [Concomitant]
     Dates: start: 20071001, end: 20080201
  13. INVEGA [Concomitant]
     Dates: start: 20080301
  14. RISPERDAL [Concomitant]
     Indication: DEPRESSION
     Dates: start: 19980724, end: 19981212
  15. RISPERDAL [Concomitant]
     Dates: start: 19981213, end: 19981227
  16. RISPERDAL [Concomitant]
     Dates: start: 20011127, end: 20041104
  17. RISPERDAL [Concomitant]
     Dates: start: 20021105, end: 20041205
  18. RISPERDAL [Concomitant]
     Dates: start: 20050219, end: 20051008
  19. RISPERDAL [Concomitant]
     Dates: start: 20051009, end: 20080201
  20. PAXIL [Concomitant]
  21. FLUOXETINE [Concomitant]
  22. HYDROCODONE [Concomitant]
  23. GLIMEPIRIDE [Concomitant]
  24. WELLBUTRIN [Concomitant]
  25. LUNESTA [Concomitant]
  26. METFORMIN [Concomitant]
  27. INSULIN [Concomitant]

REACTIONS (6)
  - DEPRESSION [None]
  - DIABETES MELLITUS [None]
  - DIABETES MELLITUS INADEQUATE CONTROL [None]
  - DRUG INEFFECTIVE [None]
  - TYPE 1 DIABETES MELLITUS [None]
  - WEIGHT INCREASED [None]
